FAERS Safety Report 4590102-1 (Version None)
Quarter: 2005Q1

REPORT INFORMATION
  Report Type: 
  Country: None (occurrence: None)
  Receive Date: 20050217
  Receipt Date: 20050203
  Transmission Date: 20050727
  Serious: Yes (Disabling)
  Sender: FDA-Public Use
  Company Number: THQ2005A00170

PATIENT
  Sex: Female

DRUGS (8)
  1. PIOGLITAZONE HCL [Suspect]
     Indication: DIABETES MELLITUS NON-INSULIN-DEPENDENT
     Dosage: SEE IMAGE
  2. PIOGLITAZONE HCL [Suspect]
     Indication: METABOLIC DISORDER
     Dosage: SEE IMAGE
  3. REPAGLINIDE [Concomitant]
  4. BARNIDIPINE [Concomitant]
  5. RAMIPRIL [Concomitant]
  6. PRAVASTATIN [Concomitant]
  7. DIGOXIN [Concomitant]
  8. ACENOCUMAROL (ACENOCOUMAROL) [Concomitant]

REACTIONS (4)
  - ACTIVITIES OF DAILY LIVING IMPAIRED [None]
  - ARTHRALGIA [None]
  - LEUKOCYTOSIS [None]
  - METABOLIC DISORDER [None]
